FAERS Safety Report 9055659 (Version 3)
Quarter: 2013Q3

REPORT INFORMATION
  Report Type: Report from Study
  Country: ES (occurrence: ES)
  Receive Date: 20130206
  Receipt Date: 20130827
  Transmission Date: 20140515
  Serious: Yes (Hospitalization)
  Sender: FDA-Public Use
  Company Number: ES-PFIZER INC-2013040462

PATIENT
  Age: 68 Year
  Sex: Female

DRUGS (7)
  1. TEMSIROLIMUS [Suspect]
     Dosage: 25 MG, WEEKLY
     Dates: start: 20121105, end: 20121203
  2. RITUXIMAB [Suspect]
     Dosage: 680 MG, WEEKLY
     Route: 042
     Dates: start: 20121105, end: 20121126
  3. ZEFFIX [Concomitant]
     Indication: CHRONIC HEPATITIS B
     Dosage: UNK
     Route: 048
     Dates: start: 20080101
  4. KREON [Concomitant]
     Indication: PANCREATITIS CHRONIC
     Dosage: UNK
     Route: 048
     Dates: start: 20030903
  5. ARANESP [Concomitant]
     Indication: MYELODYSPLASTIC SYNDROME
     Dosage: UNK
     Route: 058
     Dates: start: 201201
  6. ESCITALOPRAM [Concomitant]
     Indication: DEPRESSION
     Dosage: UNK
     Route: 048
     Dates: start: 200901
  7. GLICLAZIDE [Concomitant]
     Indication: TYPE 2 DIABETES MELLITUS
     Dosage: UNK
     Route: 048
     Dates: start: 200301

REACTIONS (1)
  - Febrile neutropenia [Recovered/Resolved]
